FAERS Safety Report 18256238 (Version 2)
Quarter: 2020Q3

REPORT INFORMATION
  Report Type: Spontaneous
  Country: SE (occurrence: SE)
  Receive Date: 20200911
  Receipt Date: 20200917
  Transmission Date: 20201103
  Serious: Yes (Other)
  Sender: FDA-Public Use
  Company Number: SE-TEVA-2020-SE-1825189

PATIENT
  Age: 64 Year
  Sex: Male

DRUGS (8)
  1. NASONEX [Concomitant]
     Active Substance: MOMETASONE FUROATE
     Route: 045
  2. ENALAPRIL [Suspect]
     Active Substance: ENALAPRIL
     Dosage: 1 DOSAGE FORM
     Route: 048
     Dates: start: 2006, end: 20070611
  3. ENALAPRIL COMP SANDOZ [Suspect]
     Active Substance: ENALAPRIL
     Dosage: 1 DOSAGE FORMS
     Route: 048
     Dates: start: 20070611, end: 20071105
  4. GAVISCON [Concomitant]
     Active Substance: ALUMINUM HYDROXIDE\MAGNESIUM CARBONATE
     Route: 048
  5. LINATIL [Suspect]
     Active Substance: ENALAPRIL MALEATE
     Dosage: 1 DOSAGE FORMS
     Route: 048
     Dates: start: 200701, end: 200701
  6. ANAPEN [Concomitant]
  7. TAVEGYL [Concomitant]
     Active Substance: CLEMASTINE FUMARATE
  8. BETAPRED [Concomitant]
     Active Substance: BETAMETHASONE SODIUM PHOSPHATE

REACTIONS (3)
  - Pharyngeal oedema [Not Recovered/Not Resolved]
  - Angioedema [Not Recovered/Not Resolved]
  - Pharyngeal oedema [Not Recovered/Not Resolved]

NARRATIVE: CASE EVENT DATE: 2007
